FAERS Safety Report 5709980-5 (Version None)
Quarter: 2008Q2

REPORT INFORMATION
  Report Type: 
  Country: None (occurrence: None)
  Receive Date: 20080418
  Receipt Date: 20071113
  Transmission Date: 20081010
  Serious: No
  Sender: FDA-Public Use
  Company Number: US-ASTRAZENECA-2007UW14694

PATIENT
  Sex: Female

DRUGS (1)
  1. TOPROL-XL [Suspect]
     Route: 048
     Dates: start: 20070213

REACTIONS (6)
  - ABASIA [None]
  - ASTHENIA [None]
  - CHEST PAIN [None]
  - DYSPNOEA [None]
  - GAIT DISTURBANCE [None]
  - POOR QUALITY DRUG ADMINISTERED [None]
